FAERS Safety Report 6201250-4 (Version None)
Quarter: 2009Q2

REPORT INFORMATION
  Report Type: 
  Country: None (occurrence: None)
  Receive Date: 20090526
  Receipt Date: 20090519
  Transmission Date: 20091009
  Serious: Yes (Hospitalization)
  Sender: FDA-Public Use
  Company Number: US-ASTRAZENECA-2009UW12917

PATIENT
  Age: 77 Year
  Sex: Female
  Weight: 97.1 kg

DRUGS (3)
  1. PULMICORT FLEXHALER [Suspect]
     Indication: CHRONIC OBSTRUCTIVE PULMONARY DISEASE
     Route: 055
     Dates: start: 20080701
  2. SINGULAIR [Concomitant]
     Route: 065
  3. IPRATROPIUM BROMIDE AND ALBUTEROL SULFATE [Concomitant]
     Route: 065

REACTIONS (6)
  - BODY HEIGHT DECREASED [None]
  - CONDUCTIVE DEAFNESS [None]
  - LABYRINTHITIS [None]
  - MEMORY IMPAIRMENT [None]
  - ROTATOR CUFF SYNDROME [None]
  - SINUSITIS [None]
